FAERS Safety Report 9357593 (Version 1)
Quarter: 2013Q2

REPORT INFORMATION
  Report Type: Spontaneous
  Country: IT (occurrence: None)
  Receive Date: 20130617
  Receipt Date: 20130617
  Transmission Date: 20140414
  Serious: Yes (Other)
  Sender: FDA-Public Use
  Company Number: 1739282

PATIENT
  Age: 69 Year
  Sex: Male

DRUGS (3)
  1. OXALIPLATIN [Suspect]
     Indication: COLON CANCER METASTATIC
     Dosage: (CYCLICAL)
     Route: 042
     Dates: start: 20130201, end: 20130312
  2. FLUOROURACIL TEVA [Suspect]
     Indication: COLON CANCER METASTATIC
     Dosage: ( CYCLICAL )  INTRAVENOUS (NOT OTHERWISE SPECIFIED)?
     Route: 041
     Dates: start: 20130201, end: 20130312
  3. AVASTIN [Suspect]
     Indication: COLON CANCER METASTATIC
     Dosage: ( CYCLICAL )  INTRAVENOUS (NOT OTHERWISE SPECIFIED)
     Route: 042
     Dates: start: 20130201, end: 20130312

REACTIONS (4)
  - Asthenia [None]
  - Dehydration [None]
  - Glossitis [None]
  - Stomatitis [None]
